FAERS Safety Report 8559187-1 (Version None)
Quarter: 2012Q3

REPORT INFORMATION
  Report Type: 
  Country: None (occurrence: None)
  Receive Date: 20120802
  Receipt Date: 20120723
  Transmission Date: 20120928
  Serious: Yes (Hospitalization)
  Sender: FDA-Public Use
  Company Number: US-MSD-1207USA011428

PATIENT

DRUGS (18)
  1. MORPHINE SULFATE [Concomitant]
  2. ACETAMINOPHEN [Concomitant]
  3. BRICANYL [Concomitant]
  4. OXAZEPAM [Concomitant]
  5. ISOPTIN [Concomitant]
  6. DUOVENT [Concomitant]
  7. FLUTICASONE PROPIONATE/SALMETEROL [Concomitant]
  8. FUROSEMIDE [Concomitant]
  9. PREDNISOLONE [Concomitant]
  10. SERTRALINE HYDROCHLORIDE [Concomitant]
  11. ZOLPIDEM TATRATE [Concomitant]
  12. PRADAXA [Suspect]
     Route: 048
  13. COZAAR [Concomitant]
     Route: 048
  14. BERODUAL [Concomitant]
  15. SPIRIVA [Concomitant]
  16. ZOCOR [Suspect]
     Dosage: UNK
     Route: 048
  17. POTASSIUM CHLORIDE [Concomitant]
  18. DIGOXIN [Concomitant]

REACTIONS (3)
  - GASTRIC ULCER [None]
  - ABDOMINAL PAIN UPPER [None]
  - IRON DEFICIENCY ANAEMIA [None]
